FAERS Safety Report 8387951-0 (Version None)
Quarter: 2012Q2

REPORT INFORMATION
  Report Type: 
  Country: None (occurrence: None)
  Receive Date: 20120525
  Receipt Date: 20120517
  Transmission Date: 20120825
  Serious: Yes (Hospitalization, Disabling, Other)
  Sender: FDA-Public Use
  Company Number: US-MERCK-1202USA03887

PATIENT
  Age: 51 Year
  Sex: Female

DRUGS (2)
  1. FOSAMAX [Suspect]
     Indication: OSTEOPOROSIS
     Route: 048
     Dates: start: 20000101
  2. FOSAMAX PLUS D [Suspect]
     Indication: OSTEOPOROSIS
     Route: 048
     Dates: start: 20000101

REACTIONS (16)
  - MULTIPLE SCLEROSIS [None]
  - FOOT FRACTURE [None]
  - FEMUR FRACTURE [None]
  - STRESS FRACTURE [None]
  - HYPERTENSION [None]
  - ADVERSE EVENT [None]
  - ARTHROPATHY [None]
  - DEPRESSION [None]
  - FALL [None]
  - ANKLE FRACTURE [None]
  - BACK DISORDER [None]
  - NIGHT SWEATS [None]
  - LOW TURNOVER OSTEOPATHY [None]
  - BONE FRAGMENTATION [None]
  - FEAR [None]
  - OSTEONECROSIS [None]
